FAERS Safety Report 24405123 (Version 1)
Quarter: 2024Q4

REPORT INFORMATION
  Report Type: Spontaneous
  Country: CN (occurrence: CN)
  Receive Date: 20241007
  Receipt Date: 20241007
  Transmission Date: 20250115
  Serious: No
  Sender: ROCHE
  Company Number: CN-ROCHE-3565081

PATIENT
  Age: 49 Year
  Sex: Male
  Weight: 78.0 kg

DRUGS (4)
  1. GAZYVA [Suspect]
     Active Substance: OBINUTUZUMAB
     Indication: Marginal zone lymphoma
     Route: 065
     Dates: start: 20231029
  2. GAZYVA [Suspect]
     Active Substance: OBINUTUZUMAB
     Dosage: 29-NOV-2023,30-DEC-2023,28-JAN-2024
     Route: 065
     Dates: start: 20231129
  3. BENDAMUSTINE [Concomitant]
     Active Substance: BENDAMUSTINE
     Dates: start: 20231029
  4. BENDAMUSTINE [Concomitant]
     Active Substance: BENDAMUSTINE
     Dosage: 29-NOV-2023,30-DEC-2023,28-JAN-2024
     Dates: start: 20231129

REACTIONS (2)
  - Off label use [Unknown]
  - No adverse event [Unknown]
